FAERS Safety Report 5676679-3 (Version None)
Quarter: 2008Q1

REPORT INFORMATION
  Report Type: 
  Country: None (occurrence: None)
  Receive Date: 20080318
  Receipt Date: 20080305
  Transmission Date: 20080703
  Serious: Yes (Hospitalization)
  Sender: FDA-Public Use
  Company Number: 6041084

PATIENT
  Age: 67 Year
  Sex: Female

DRUGS (9)
  1. CONGESCOR (1.25 MG) (BISOPROLOL FUMARATE) [Suspect]
     Indication: HYPERTENSION
     Dosage: 1.25 MG (1.25 MG, 1 IN 1 D); ORAL
     Route: 048
     Dates: start: 20080116, end: 20080122
  2. INSULINE (INSULIN) [Concomitant]
  3. CARDIRENE (160 MG) (ACETYLSALICYLATE LYSINE) [Concomitant]
  4. NITROCOR (10MG) (GLYCERYL TRINITRATE) [Concomitant]
  5. LORTAAN (50 MG) (LOSARTAN POTASSIUM) [Concomitant]
  6. ESAPENT(1 GRAM) (OMEGA-3) TRIGLYCERIDES) [Concomitant]
  7. SINVACOR (20 MG) (SIMVASTATIN) [Concomitant]
  8. PANTORIC (40 MG) (PANTOPRAZOLE SODIUM) [Concomitant]
  9. CORDARONE [Concomitant]

REACTIONS (4)
  - DRUG TOXICITY [None]
  - LEUKOPENIA [None]
  - MYELODYSPLASTIC SYNDROME [None]
  - THROMBOCYTOPENIA [None]
